FAERS Safety Report 6963615-2 (Version None)
Quarter: 2010Q3

REPORT INFORMATION
  Report Type: 
  Country: None (occurrence: None)
  Receive Date: 20100902
  Receipt Date: 20100820
  Transmission Date: 20110219
  Serious: Yes (Hospitalization)
  Sender: FDA-Public Use
  Company Number: US-ELI_LILLY_AND_COMPANY-US201008007158

PATIENT
  Age: 71 Year
  Sex: Female

DRUGS (5)
  1. FORTEO [Suspect]
     Indication: OSTEOPOROSIS
     Dosage: 20 UG, DAILY (1/D)
     Dates: start: 20091112
  2. DIOVAN [Concomitant]
  3. METFORMIN [Concomitant]
     Indication: DIABETES MELLITUS
  4. NEXIUM [Concomitant]
  5. VITAMIN TAB [Concomitant]

REACTIONS (9)
  - BONE PAIN [None]
  - DYSPEPSIA [None]
  - GINGIVAL DISORDER [None]
  - HEART RATE INCREASED [None]
  - HERPES ZOSTER [None]
  - MALAISE [None]
  - PAIN [None]
  - RASH [None]
  - TOOTH DISORDER [None]
